FAERS Safety Report 12283266 (Version 1)
Quarter: 2016Q2

REPORT INFORMATION
  Report Type: Report from Study
  Country: US (occurrence: US)
  Receive Date: 20160419
  Receipt Date: 20160419
  Transmission Date: 20160815
  Serious: No
  Sender: FDA-Public Use
  Company Number: US-ABBVIE-16P-163-1542320-00

PATIENT
  Age: 8 Year
  Sex: Female

DRUGS (1)
  1. LUPRON DEPOT-PED [Suspect]
     Active Substance: LEUPROLIDE ACETATE
     Indication: PRECOCIOUS PUBERTY
     Route: 050
     Dates: start: 20151021

REACTIONS (6)
  - Gait disturbance [Recovered/Resolved]
  - Mood altered [Recovered/Resolved]
  - Decreased appetite [Recovered/Resolved]
  - Fatigue [Unknown]
  - Injection site pain [Recovered/Resolved]
  - Inappropriate schedule of drug administration [Unknown]

NARRATIVE: CASE EVENT DATE: 20160102
